FAERS Safety Report 16413336 (Version 1)
Quarter: 2019Q2

REPORT INFORMATION
  Report Type: Spontaneous
  Country: US (occurrence: US)
  Receive Date: 20190611
  Receipt Date: 20190611
  Transmission Date: 20190711
  Serious: No
  Sender: FDA-Public Use
  Company Number: PHEH2019US023264

PATIENT
  Sex: Male

DRUGS (1)
  1. NEORAL [Suspect]
     Active Substance: CYCLOSPORINE
     Indication: LIVER TRANSPLANT
     Dosage: 100 MG, BID
     Route: 048

REACTIONS (3)
  - Pain in extremity [Not Recovered/Not Resolved]
  - Product dose omission [Not Recovered/Not Resolved]
  - Limb discomfort [Not Recovered/Not Resolved]
